FAERS Safety Report 5810581-9 (Version None)
Quarter: 2008Q3

REPORT INFORMATION
  Report Type: 
  Country: None (occurrence: None)
  Receive Date: 20080709
  Receipt Date: 20080702
  Transmission Date: 20090109
  Serious: Yes (Hospitalization)
  Sender: FDA-Public Use
  Company Number: 2008SP009705

PATIENT
  Age: 76 Year
  Sex: Female
  Weight: 48 kg

DRUGS (23)
  1. TEMODAL [Suspect]
     Indication: GLIOBLASTOMA
     Dosage: 79 MG/M2; QD; PO
     Route: 048
     Dates: start: 20070301, end: 20070419
  2. PANTOPRAZOLE SODIUM [Concomitant]
  3. FORTECORTIN [Concomitant]
  4. TORSEMIDE [Concomitant]
  5. KEVATRIL [Concomitant]
  6. VOLTAREN [Concomitant]
  7. NOVALGIN [Concomitant]
  8. ENOXAPARIN SODIUM [Concomitant]
  9. TPN ELECTROLYTES IN PLASTIC CONTAINER [Concomitant]
  10. OXAZEPAM [Concomitant]
  11. VALERIAN [Concomitant]
  12. HEXORALETTEN [Concomitant]
  13. OXYGESIC [Concomitant]
  14. KALINOR [Concomitant]
  15. LACTULOSE [Concomitant]
  16. CEFAZOLIN [Concomitant]
  17. IRON [Concomitant]
  18. TRAMAL [Concomitant]
  19. CLINDAMYCIN [Concomitant]
  20. METOCLOPRAMIDE HYDROCHLORIDE [Concomitant]
  21. TPN ELECTROLYTES IN PLASTIC CONTAINER [Concomitant]
  22. LIPOFUNDIN [Concomitant]
  23. FUROSEMIDE [Concomitant]

REACTIONS (5)
  - FALL [None]
  - FEMUR FRACTURE [None]
  - IMPAIRED HEALING [None]
  - SOFT TISSUE INFECTION [None]
  - WOUND INFECTION [None]
